FAERS Safety Report 22229837 (Version 1)
Quarter: 2023Q2

REPORT INFORMATION
  Report Type: Spontaneous
  Country: US (occurrence: None)
  Receive Date: 20230418
  Receipt Date: 20230418
  Transmission Date: 20230721
  Serious: No
  Sender: FDA-Public Use
  Company Number: None

PATIENT
  Sex: Female

DRUGS (1)
  1. GENOTROPIN [Suspect]
     Active Substance: SOMATROPIN
     Dosage: 0.2MG DAILY SUBCUTANEOUS
     Route: 058

REACTIONS (6)
  - Headache [None]
  - Chest pain [None]
  - Neck pain [None]
  - Pain in jaw [None]
  - Ear pain [None]
  - Swollen tongue [None]
